FAERS Safety Report 8480849-9 (Version None)
Quarter: 2012Q2

REPORT INFORMATION
  Report Type: 
  Country: None (occurrence: None)
  Receive Date: 20120626
  Receipt Date: 20120626
  Transmission Date: 20120825
  Serious: Yes (Other)
  Sender: FDA-Public Use
  Company Number: None

PATIENT
  Age: 38 Year
  Sex: Female
  Weight: 81.6475 kg

DRUGS (2)
  1. CETIRIZINE HCL [Suspect]
     Indication: SEASONAL ALLERGY
     Dosage: ONE 10 MG TABLET ONCE DAILY PO
     Route: 048
  2. ZYRTEC [Concomitant]

REACTIONS (2)
  - WITHDRAWAL SYNDROME [None]
  - DEPENDENCE [None]
